FAERS Safety Report 4907197-5 (Version None)
Quarter: 2006Q1

REPORT INFORMATION
  Report Type: 
  Country: None (occurrence: None)
  Receive Date: 20060207
  Receipt Date: 20060120
  Transmission Date: 20060701
  Serious: No
  Sender: FDA-Public Use
  Company Number: US200601003979

PATIENT
  Age: 40 Year
  Sex: Male

DRUGS (1)
  1. CYMBALTA [Suspect]
     Indication: SLEEP DISORDER
     Dosage: 60 MG
     Dates: start: 20050101, end: 20060101

REACTIONS (2)
  - LIVER FUNCTION TEST ABNORMAL [None]
  - VERTIGO [None]
